FAERS Safety Report 22620653 (Version 7)
Quarter: 2024Q1

REPORT INFORMATION
  Report Type: Spontaneous
  Country: DE (occurrence: DE)
  Receive Date: 20230620
  Receipt Date: 20240124
  Transmission Date: 20240410
  Serious: Yes (Hospitalization, Other)
  Sender: FDA-Public Use
  Company Number: DE-KOREA IPSEN Pharma-2023-14712

PATIENT
  Age: 52 Year
  Sex: Male
  Weight: 94 kg

DRUGS (3)
  1. CABOMETYX [Suspect]
     Active Substance: CABOZANTINIB S-MALATE
     Indication: Clear cell renal cell carcinoma
     Dosage: 40 MG
     Route: 065
     Dates: start: 20220909
  2. NIVOLUMAB [Suspect]
     Active Substance: NIVOLUMAB
     Indication: Clear cell renal cell carcinoma
     Dosage: 240 MG Q2W
     Route: 065
     Dates: start: 20220909
  3. NIVOLUMAB [Suspect]
     Active Substance: NIVOLUMAB
     Dosage: 240 MG Q2W
     Route: 065
     Dates: start: 20230104

REACTIONS (16)
  - Tachycardia [Unknown]
  - Extradural neoplasm [Unknown]
  - Tenderness [Unknown]
  - Dyspnoea [Unknown]
  - Cough [Unknown]
  - Pain in extremity [Unknown]
  - Pulmonary embolism [Recovered/Resolved]
  - Clear cell renal cell carcinoma [Unknown]
  - Malignant neoplasm progression [Unknown]
  - Disease progression [Unknown]
  - Infusion related reaction [Unknown]
  - Spinal stenosis [Unknown]
  - Blood pressure abnormal [Unknown]
  - Transaminases increased [Unknown]
  - Hypertension [Unknown]
  - Diarrhoea [Unknown]

NARRATIVE: CASE EVENT DATE: 20221021
